FAERS Safety Report 17870867 (Version 1)
Quarter: 2020Q2

REPORT INFORMATION
  Report Type: Spontaneous
  Country: US (occurrence: US)
  Receive Date: 20200607
  Receipt Date: 20200607
  Transmission Date: 20200714
  Serious: Yes (Other)
  Sender: FDA-Public Use
  Company Number: None

PATIENT
  Age: 39 Year
  Sex: Female
  Weight: 78.75 kg

DRUGS (3)
  1. OMEGA DHA [Concomitant]
  2. NP THYROID [Suspect]
     Active Substance: LEVOTHYROXINE\LIOTHYRONINE
     Indication: HYPOTHYROIDISM
     Dosage: ?          QUANTITY:1 TABLET(S);?
     Route: 048
  3. PRENATAL VITAMIN [Concomitant]
     Active Substance: VITAMINS

REACTIONS (8)
  - Presyncope [None]
  - Vision blurred [None]
  - Palpitations [None]
  - Exposure during pregnancy [None]
  - Dyspnoea [None]
  - Dizziness [None]
  - Pregnancy [None]
  - Fatigue [None]

NARRATIVE: CASE EVENT DATE: 20200602
